FAERS Safety Report 4524043-2 (Version None)
Quarter: 2004Q4

REPORT INFORMATION
  Report Type: 
  Country: None (occurrence: None)
  Receive Date: 20041209
  Receipt Date: 20041126
  Transmission Date: 20050328
  Serious: Yes (Hospitalization, Other)
  Sender: FDA-Public Use
  Company Number: 2004098554

PATIENT
  Age: 56 Year
  Sex: Male

DRUGS (2)
  1. VIAGRA [Suspect]
     Indication: ERECTILE DYSFUNCTION
     Dosage: (AS NCESARY), ORAL
     Route: 048
  2. CANDESARTAN CILEXETIL (CANDESARTAN CILEXETIL) [Suspect]
     Indication: HYPERTENSION
     Dosage: 16 MG (16 MG, 1 IN 1 1 D), ORAL
     Route: 048
     Dates: start: 19980101, end: 20040714

REACTIONS (2)
  - CHOLECYSTITIS [None]
  - HEPATITIS CHOLESTATIC [None]
